FAERS Safety Report 7421955-7 (Version None)
Quarter: 2011Q2

REPORT INFORMATION
  Report Type: 
  Country: None (occurrence: None)
  Receive Date: 20110418
  Receipt Date: 20110411
  Transmission Date: 20111010
  Serious: Yes (Hospitalization)
  Sender: FDA-Public Use
  Company Number: US-ELI_LILLY_AND_COMPANY-US201104003665

PATIENT
  Sex: Female

DRUGS (5)
  1. LEVEMIR [Concomitant]
     Dosage: UNK
  2. LANTUS [Concomitant]
     Dosage: UNK
  3. HUMALOG [Suspect]
     Indication: TYPE 1 DIABETES MELLITUS
     Dosage: UNK, PRN
  4. HUMALOG [Suspect]
     Dosage: UNK, PRN
  5. NOVOLOG [Concomitant]
     Dosage: UNK

REACTIONS (3)
  - OSTEOMYELITIS [None]
  - GAIT DISTURBANCE [None]
  - WOUND INFECTION [None]
